FAERS Safety Report 6214080-4 (Version None)
Quarter: 2009Q2

REPORT INFORMATION
  Report Type: 
  Country: None (occurrence: None)
  Receive Date: 20090602
  Receipt Date: 20090520
  Transmission Date: 20091009
  Serious: Yes (Hospitalization)
  Sender: FDA-Public Use
  Company Number: 2009AL003415

PATIENT
  Age: 62 Year
  Sex: Female

DRUGS (1)
  1. HALOPERIDOL LACTATE ORAL SOLUTION USP, EQ. 1 MG LACTATE/ML [Suspect]

REACTIONS (2)
  - DRUG TOXICITY [None]
  - NEUROLEPTIC MALIGNANT SYNDROME [None]
